FAERS Safety Report 18050133 (Version 5)
Quarter: 2021Q4

REPORT INFORMATION
  Report Type: Other
  Country: AT (occurrence: None)
  Receive Date: 20200721
  Receipt Date: 20211224
  Transmission Date: 20220303
  Serious: No
  Sender: FDA-Public Use
  Company Number: AT-ROCHE-2643670

PATIENT
  Age: 44 Year
  Sex: Female

DRUGS (36)
  1. OCRELIZUMAB [Suspect]
     Active Substance: OCRELIZUMAB
     Indication: Primary progressive multiple sclerosis
     Dosage: 300 MG/250 ML
     Route: 042
     Dates: start: 20190429
  2. OCRELIZUMAB [Suspect]
     Active Substance: OCRELIZUMAB
     Indication: Progressive relapsing multiple sclerosis
     Dosage: 300 MG/250 ML
     Route: 042
     Dates: start: 20190513
  3. OCRELIZUMAB [Suspect]
     Active Substance: OCRELIZUMAB
     Dosage: 600 MG/500 ML
     Route: 042
     Dates: start: 20191118
  4. OCRELIZUMAB [Suspect]
     Active Substance: OCRELIZUMAB
     Dosage: 600 MG/500 ML
     Route: 042
     Dates: start: 20200622
  5. NEBIVOLOL HYDROCHLORIDE [Concomitant]
     Active Substance: NEBIVOLOL HYDROCHLORIDE
     Route: 048
  6. SIMVASTATIN [Concomitant]
     Active Substance: SIMVASTATIN
     Route: 048
     Dates: end: 20200603
  7. BETHANECHOL CHLORIDE [Concomitant]
     Active Substance: BETHANECHOL CHLORIDE
     Route: 048
  8. AGLANDIN (AUSTRIA) [Concomitant]
     Route: 048
  9. ACIMED [Concomitant]
     Dosage: 1 CAPSULE
     Route: 048
  10. SOLUDACORTIN [Concomitant]
     Indication: Premedication
     Route: 042
     Dates: start: 20190429, end: 20190429
  11. SOLUDACORTIN [Concomitant]
     Route: 042
     Dates: start: 20190513, end: 20190513
  12. SOLUDACORTIN [Concomitant]
     Route: 042
     Dates: start: 20191118, end: 20191118
  13. SOLUDACORTIN [Concomitant]
     Route: 042
     Dates: start: 20200622, end: 20200622
  14. SOLUDACORTIN [Concomitant]
     Route: 042
     Dates: start: 20210111, end: 20210111
  15. DIPHENHYDRAMINE HYDROCHLORIDE [Concomitant]
     Active Substance: DIPHENHYDRAMINE HYDROCHLORIDE
     Indication: Premedication
     Route: 042
     Dates: start: 20190429, end: 20190429
  16. DIPHENHYDRAMINE HYDROCHLORIDE [Concomitant]
     Active Substance: DIPHENHYDRAMINE HYDROCHLORIDE
     Route: 042
     Dates: start: 20200622, end: 20200622
  17. DIPHENHYDRAMINE HYDROCHLORIDE [Concomitant]
     Active Substance: DIPHENHYDRAMINE HYDROCHLORIDE
     Route: 042
     Dates: start: 20210111, end: 20210111
  18. DIPHENHYDRAMINE HYDROCHLORIDE [Concomitant]
     Active Substance: DIPHENHYDRAMINE HYDROCHLORIDE
     Route: 042
     Dates: start: 20190513, end: 20190513
  19. DIPHENHYDRAMINE HYDROCHLORIDE [Concomitant]
     Active Substance: DIPHENHYDRAMINE HYDROCHLORIDE
     Route: 042
     Dates: start: 20191118, end: 20191118
  20. DIPHENHYDRAMINE HYDROCHLORIDE [Concomitant]
     Active Substance: DIPHENHYDRAMINE HYDROCHLORIDE
     Route: 042
     Dates: start: 20210909, end: 20210909
  21. ACETAMINOPHEN [Concomitant]
     Active Substance: ACETAMINOPHEN
     Indication: Premedication
     Route: 048
     Dates: start: 20190429, end: 20190429
  22. ACETAMINOPHEN [Concomitant]
     Active Substance: ACETAMINOPHEN
     Route: 048
     Dates: start: 20190513, end: 20190513
  23. ACETAMINOPHEN [Concomitant]
     Active Substance: ACETAMINOPHEN
     Route: 048
     Dates: start: 20200622, end: 20200622
  24. ACETAMINOPHEN [Concomitant]
     Active Substance: ACETAMINOPHEN
     Route: 048
     Dates: start: 20191118, end: 20191118
  25. ACETAMINOPHEN [Concomitant]
     Active Substance: ACETAMINOPHEN
     Route: 048
     Dates: start: 20210111, end: 20210111
  26. ACETAMINOPHEN [Concomitant]
     Active Substance: ACETAMINOPHEN
     Route: 048
     Dates: start: 20210909, end: 20210909
  27. GINKGO [Concomitant]
     Active Substance: GINKGO
     Route: 048
     Dates: start: 20200603
  28. VIROPEL [Concomitant]
     Route: 048
     Dates: start: 20200625, end: 20200702
  29. VIROPEL [Concomitant]
     Route: 048
     Dates: start: 20200703, end: 20200706
  30. VIROPEL [Concomitant]
     Route: 048
     Dates: start: 20200707, end: 20200806
  31. VIROPEL [Concomitant]
     Route: 048
     Dates: start: 20210104, end: 2021
  32. FOSFOMYCIN TROMETHAMINE [Concomitant]
     Active Substance: FOSFOMYCIN TROMETHAMINE
     Route: 048
     Dates: start: 20190429
  33. LIORESAL [Concomitant]
     Active Substance: BACLOFEN
     Route: 048
     Dates: start: 20200924
  34. METASOL [METHYLPREDNISOLONE] [Concomitant]
     Route: 042
     Dates: start: 20210909, end: 20210909
  35. NEUROBION FORTE [Concomitant]
     Active Substance: CYANOCOBALAMIN\PYRIDOXINE HYDROCHLORIDE\THIAMINE DISULFIDE
     Route: 048
  36. CHOLECALCIFEROL [Concomitant]
     Active Substance: CHOLECALCIFEROL
     Route: 048

REACTIONS (1)
  - Genital herpes [Recovering/Resolving]

NARRATIVE: CASE EVENT DATE: 20200624
